FAERS Safety Report 17913533 (Version 1)
Quarter: 2020Q2

REPORT INFORMATION
  Report Type: Spontaneous
  Country: DE (occurrence: DE)
  Receive Date: 20200618
  Receipt Date: 20200618
  Transmission Date: 20200714
  Serious: Yes (Hospitalization)
  Sender: FDA-Public Use
  Company Number: DE-ALLERGAN-2023401US

PATIENT
  Sex: Female

DRUGS (1)
  1. FOSFOMYCIN TROMETHAMINE - BP [Suspect]
     Active Substance: FOSFOMYCIN TROMETHAMINE
     Indication: URINARY TRACT INFECTION
     Dosage: 2 DF, TOTAL
     Route: 048

REACTIONS (8)
  - Medication error [Unknown]
  - Flank pain [Recovered/Resolved]
  - Urinary tract infection [Recovered/Resolved]
  - Product prescribing error [Unknown]
  - Dysuria [Recovered/Resolved]
  - Pyrexia [Recovered/Resolved]
  - Exposure via breast milk [Unknown]
  - Drug ineffective [Unknown]

NARRATIVE: CASE EVENT DATE: 20191031
